FAERS Safety Report 19980285 (Version 1)
Quarter: 2021Q4

REPORT INFORMATION
  Report Type: Spontaneous
  Country: SE (occurrence: SE)
  Receive Date: 20211021
  Receipt Date: 20211021
  Transmission Date: 20220303
  Serious: Yes (Other)
  Sender: FDA-Public Use
  Company Number: None

PATIENT
  Age: 87 Year
  Sex: Female

DRUGS (17)
  1. ALBUTEROL SULFATE [Suspect]
     Active Substance: ALBUTEROL SULFATE
     Indication: Chronic obstructive pulmonary disease
     Dosage: INHALATION SPRAY, SUSPENSION
     Route: 065
  2. BECLOMETHASONE DIPROPIONATE [Suspect]
     Active Substance: BECLOMETHASONE DIPROPIONATE
     Indication: Chronic obstructive pulmonary disease
     Route: 065
  3. ENALAPRIL MALEATE [Suspect]
     Active Substance: ENALAPRIL MALEATE
     Indication: Cardiac disorder
     Dosage: 20MILLIGRAM
     Route: 065
  4. BISOPROLOL [Suspect]
     Active Substance: BISOPROLOL
     Indication: Cardiac disorder
     Dosage: 5MILLIGRAM
     Route: 065
  5. BISOPROLOL [Suspect]
     Active Substance: BISOPROLOL
     Indication: Blood pressure measurement
  6. MONTELUKAST SODIUM [Suspect]
     Active Substance: MONTELUKAST SODIUM
     Route: 065
  7. OLODATEROL HYDROCHLORIDE\TIOTROPIUM BROMIDE MONOHYDRATE [Suspect]
     Active Substance: OLODATEROL HYDROCHLORIDE\TIOTROPIUM BROMIDE MONOHYDRATE
     Indication: Chronic obstructive pulmonary disease
     Dosage: 2 INHALATIONS 1 TIMES DAILY:PER PUFF INHALATION FLUID:FORMSTRENGTH:2.5 MICROGRAMS / 2.5 MICROGRAMS
     Route: 065
  8. Vi-Siblin [Concomitant]
     Dosage: 1 DOSAGE BAG 2-3 TIMES DAILY UNTIL NEXT:FORMSTRENGTH:610 MG / G GRANULES IN DOSE PHASE:GRANULES IN S
  9. ACETAMINOPHEN [Concomitant]
     Active Substance: ACETAMINOPHEN
     Dosage: IF NECESSARY
  10. Folacin [Concomitant]
     Dosage: 1MILLIGRAM
  11. ASPIRIN [Concomitant]
     Active Substance: ASPIRIN
     Dosage: 75MILLIGRAM
  12. COMIRNATY [Concomitant]
     Active Substance: TOZINAMERAN
     Dosage: DOS 2
     Dates: start: 20210401, end: 20210401
  13. COMIRNATY [Concomitant]
     Active Substance: TOZINAMERAN
     Dosage: DOS 1
     Dates: start: 20210311, end: 20210311
  14. Acetylcystein 1A Farma [Concomitant]
     Dosage: 600MILLIGRAM
  15. INSULIN ASPART [Concomitant]
     Active Substance: INSULIN ASPART
     Dosage: TAKEN IN CONNECTION WITH GOAL TIME:SUSPENSION FOR INJECTION IN PRE-FILLED INFUSION:FORMSTRENGTH:100
  16. Felodipin STADA [Concomitant]
     Dosage: 10MILLIGRAM
  17. CYANOCOBALAMIN [Concomitant]
     Active Substance: CYANOCOBALAMIN
     Dosage: 1MILLIGRAM

REACTIONS (8)
  - Tooth injury [Unknown]
  - Tongue discomfort [Unknown]
  - Tongue coated [Unknown]
  - Vomiting [Unknown]
  - Productive cough [Unknown]
  - Lip swelling [Unknown]
  - Swollen tongue [Unknown]
  - Oral mucosal exfoliation [Unknown]

NARRATIVE: CASE EVENT DATE: 20200427
